FAERS Safety Report 6931324-1 (Version None)
Quarter: 2010Q3

REPORT INFORMATION
  Report Type: 
  Country: None (occurrence: None)
  Receive Date: 20100818
  Receipt Date: 20100804
  Transmission Date: 20110219
  Serious: Yes (Other)
  Sender: FDA-Public Use
  Company Number: PHHY2010US51538

PATIENT
  Sex: Female

DRUGS (8)
  1. RECLAST [Suspect]
  2. RECLAST [Suspect]
     Dosage: UNK
     Dates: start: 20100622
  3. PREVACID [Concomitant]
     Dosage: 30 MG/DAY
  4. MULTI-VITAMINS [Concomitant]
  5. VITAMIN D [Concomitant]
  6. CITRACAL [Concomitant]
  7. FISH OIL [Concomitant]
  8. OSTEO BI-FLEX [Concomitant]
     Dosage: 2 DF, QD

REACTIONS (10)
  - ARTHRALGIA [None]
  - BONE PAIN [None]
  - FATIGUE [None]
  - GLAUCOMA [None]
  - INFLUENZA LIKE ILLNESS [None]
  - JOINT CREPITATION [None]
  - MUSCULOSKELETAL PAIN [None]
  - NECK PAIN [None]
  - PAIN IN EXTREMITY [None]
  - PAIN IN JAW [None]
